FAERS Safety Report 8329002-X (Version None)
Quarter: 2012Q2

REPORT INFORMATION
  Report Type: 
  Country: None (occurrence: None)
  Receive Date: 20120430
  Receipt Date: 20120417
  Transmission Date: 20120825
  Serious: Yes (Other)
  Sender: FDA-Public Use
  Company Number: AUR-APL-2012-01335

PATIENT
  Age: 70 Year
  Sex: Female
  Weight: 82.09 kg

DRUGS (9)
  1. VITAMIN D [Concomitant]
  2. LEVOTHYROXINE SODIUM [Concomitant]
  3. METOPROLOL TARTRATE [Suspect]
     Indication: CARDIAC DISORDER
     Dosage: (50 MG, 1 D) 50 MG (25 MG, 2 IN 1 D)
  4. METOPROLOL TARTRATE [Suspect]
     Indication: BLOOD PRESSURE ABNORMAL
     Dosage: (50 MG, 1 D) 50 MG (25 MG, 2 IN 1 D)
  5. LIPITOR [Suspect]
     Indication: CARDIAC DISORDER
     Dosage: 30 MG (60 MG, 1 IN 2 D)
  6. LIPITOR [Suspect]
     Indication: BLOOD CHOLESTEROL ABNORMAL
     Dosage: 30 MG (60 MG, 1 IN 2 D)
  7. ZETIA [Suspect]
     Indication: BLOOD CHOLESTEROL ABNORMAL
     Dosage: (10 MG, 1 D) 5 MG (10 MG, 1 IN 2 D)
     Dates: end: 20120201
  8. CALCIUM CARBONATE [Concomitant]
  9. ASPIRIN [Concomitant]

REACTIONS (8)
  - BODY HEIGHT DECREASED [None]
  - DIABETES MELLITUS [None]
  - OSTEOPOROSIS [None]
  - RESTLESSNESS [None]
  - POLLAKIURIA [None]
  - JOINT SWELLING [None]
  - HYPOAESTHESIA [None]
  - MUSCLE SPASMS [None]
